FAERS Safety Report 8439076-3 (Version None)
Quarter: 2012Q2

REPORT INFORMATION
  Report Type: 
  Country: None (occurrence: None)
  Receive Date: 20120615
  Receipt Date: 20120612
  Transmission Date: 20120825
  Serious: Yes (Life-Threatening, Hospitalization)
  Sender: FDA-Public Use
  Company Number: CH-JNJFOC-20120510818

PATIENT
  Age: 63 Year
  Sex: Male

DRUGS (17)
  1. DIPIPERON [Suspect]
     Route: 048
     Dates: start: 20111221, end: 20111227
  2. DIPIPERON [Suspect]
     Indication: PRODUCT USED FOR UNKNOWN INDICATION
     Route: 048
     Dates: start: 20120104, end: 20120131
  3. DIPIPERON [Suspect]
     Dosage: 20 - 40MG
     Route: 048
     Dates: start: 20111129, end: 20111129
  4. VALPROIC ACID [Suspect]
     Route: 048
     Dates: start: 20111221, end: 20120110
  5. PARAGARD T 380A [Suspect]
     Indication: PRODUCT USED FOR UNKNOWN INDICATION
     Route: 048
     Dates: start: 20111128, end: 20120203
  6. DIPIPERON [Suspect]
     Dosage: 60 - 80MG
     Route: 048
     Dates: start: 20111130, end: 20111220
  7. CLOZAPINE [Suspect]
     Indication: PRODUCT USED FOR UNKNOWN INDICATION
     Route: 048
     Dates: start: 20120110, end: 20120131
  8. CLOZAPINE [Suspect]
     Dosage: 37.5 - 50MG
     Route: 048
     Dates: start: 20111221, end: 20120103
  9. CLOZAPINE [Suspect]
     Dosage: 12.5 - 25MG
     Route: 048
     Dates: start: 20111205, end: 20111220
  10. GALANTAMINE HYDROBROMIDE [Suspect]
     Indication: PRODUCT USED FOR UNKNOWN INDICATION
     Dosage: SINCE MANY YEARS AND CONTINUE
     Route: 048
  11. VALPROIC ACID [Suspect]
     Route: 048
     Dates: end: 20120131
  12. DIPIPERON [Suspect]
     Route: 048
     Dates: start: 20111228, end: 20120103
  13. VALPROIC ACID [Suspect]
     Dosage: 350 +#150; 450MG
     Route: 048
     Dates: start: 20111126, end: 20111220
  14. REMERON [Suspect]
     Indication: PRODUCT USED FOR UNKNOWN INDICATION
     Route: 048
     Dates: start: 20111114, end: 20120131
  15. VALPROIC ACID [Suspect]
     Route: 048
     Dates: start: 20120111, end: 20120125
  16. CLOZAPINE [Suspect]
     Route: 048
     Dates: start: 20120104, end: 20120109
  17. VALPROIC ACID [Suspect]
     Indication: PRODUCT USED FOR UNKNOWN INDICATION
     Dosage: 100 - 300MG
     Route: 048
     Dates: start: 20111114, end: 20111125

REACTIONS (2)
  - AGRANULOCYTOSIS [None]
  - APHTHOUS STOMATITIS [None]
